FAERS Safety Report 21583901 (Version 1)
Quarter: 2022Q4

REPORT INFORMATION
  Report Type: Spontaneous
  Country: SE (occurrence: SE)
  Receive Date: 20221111
  Receipt Date: 20221111
  Transmission Date: 20230113
  Serious: Yes (Life-Threatening)
  Sender: FDA-Public Use
  Company Number: None

PATIENT
  Age: 79 Year
  Sex: Male
  Weight: 72 kg

DRUGS (6)
  1. SILDENAFIL [Suspect]
     Active Substance: SILDENAFIL
     Indication: Erectile dysfunction
     Dosage: 100 MG 1 TABLET AS NEEDED. MAX 1 PER DAY, STRENGTH : 100 MG
     Route: 065
     Dates: start: 20221011, end: 20221011
  2. OMEPRAZOLE [Concomitant]
     Active Substance: OMEPRAZOLE
     Indication: Product used for unknown indication
     Dosage: 20 MILLIGRAM DAILY; IN THE MORNING, ENTERIC CAPSULE, HARD, UNIT DOSE AND UNIT STRENGTH  : 20 MG, FRE
  3. METOPROLOL [Concomitant]
     Active Substance: METOPROLOL
     Indication: Product used for unknown indication
     Dosage: 50 MILLIGRAM DAILY; IN THE MORNING FOR THE HEART, LOWERS THE PULSE, UNIT DOSE AND UNIT STRENGTH  : 5
  4. ELIQUIS [Concomitant]
     Active Substance: APIXABAN
     Indication: Product used for unknown indication
     Dosage: 5 MILLIGRAM DAILY; IN THE MORNING, IN THE EVENING, UNIT DOSE AND UNIT STRENGTH  :2.5  MG, FREQUENCY
  5. BENDROFLUMETHIAZIDE [Concomitant]
     Active Substance: BENDROFLUMETHIAZIDE
     Indication: Product used for unknown indication
     Dosage: 2.5 MILLIGRAM DAILY;  IN THE MORNING, UNIT DOSE AND UNIT STRENGTH  : 2.5 MG, FREQUENCY ; 1 , FREQUEN
  6. Candrozide [Concomitant]
     Indication: Hypertension
     Dosage: 32 MILLIGRAM DAILY;  IN THE MORNING, UNIT DOSE AND UNIT STRENGTH  : 32 MG, FREQUENCY ; 1 , FREQUENCY

REACTIONS (2)
  - Blood pressure decreased [Recovered/Resolved]
  - Syncope [Recovered/Resolved]

NARRATIVE: CASE EVENT DATE: 20221011
